FAERS Safety Report 6648628-2 (Version None)
Quarter: 2010Q1

REPORT INFORMATION
  Report Type: 
  Country: None (occurrence: None)
  Receive Date: 20100319
  Receipt Date: 20100309
  Transmission Date: 20100710
  Serious: Yes (Hospitalization)
  Sender: FDA-Public Use
  Company Number: 1000012475

PATIENT
  Age: 58 Year
  Sex: Female

DRUGS (6)
  1. CELEXA [Suspect]
     Dosage: (1 IN 1 D), ORAL
     Route: 048
     Dates: start: 20091201, end: 20091201
  2. CELEXA [Suspect]
     Dosage: (1 IN 1 D), ORAL
     Route: 048
     Dates: start: 20100101, end: 20100124
  3. ATENOLOL [Concomitant]
  4. MAGNESIUM [Concomitant]
  5. POTASSIUM [Concomitant]
  6. VITAMIN B-12 [Concomitant]

REACTIONS (8)
  - ASTHENIA [None]
  - DIZZINESS [None]
  - FEELING COLD [None]
  - HYPERVENTILATION [None]
  - IMPAIRED GASTRIC EMPTYING [None]
  - LONG QT SYNDROME [None]
  - RETCHING [None]
  - VOMITING [None]
